FAERS Safety Report 7803503-2 (Version None)
Quarter: 2011Q4

REPORT INFORMATION
  Report Type: 
  Country: None (occurrence: None)
  Receive Date: 20111007
  Receipt Date: 20110928
  Transmission Date: 20120403
  Serious: Yes (Other)
  Sender: FDA-Public Use
  Company Number: US-ASTRAZENECA-2011SE51743

PATIENT
  Age: 68 Year
  Sex: Male
  Weight: 56.7 kg

DRUGS (4)
  1. SYMBICORT [Suspect]
     Indication: ASTHMA
     Dosage: TWO PUFFS ONCE A DAY
     Route: 055
     Dates: start: 20100801
  2. SPIRIVA [Concomitant]
     Route: 055
  3. SPIRIVA [Concomitant]
     Indication: RESPIRATORY DISORDER
     Dosage: EVERY DAY
     Route: 055
     Dates: start: 20100101
  4. NEXIUM [Suspect]
     Route: 048

REACTIONS (5)
  - DRUG DOSE OMISSION [None]
  - CEREBROVASCULAR ARTERIOVENOUS MALFORMATION [None]
  - OFF LABEL USE [None]
  - INSOMNIA [None]
  - RESPIRATORY DISORDER [None]
